FAERS Safety Report 5335348-X (Version None)
Quarter: 2007Q1

REPORT INFORMATION
  Report Type: 
  Country: None (occurrence: None)
  Receive Date: 20070322
  Receipt Date: 20061122
  Transmission Date: 20070707
  Serious: Yes (Disabling)
  Sender: FDA-Public Use
  Company Number: 2006RL000441

PATIENT
  Age: 46 Year
  Sex: Female

DRUGS (6)
  1. OMACOR [Suspect]
     Indication: ILL-DEFINED DISORDER
     Dosage: PO
     Route: 048
     Dates: start: 20061001, end: 20061023
  2. FUROSEMIDE [Concomitant]
  3. PERINDOPRIL [Concomitant]
  4. MELOXICAM [Concomitant]
  5. ESTRADIOL VALERATE [Concomitant]
  6. GLICLAZIDE [Concomitant]

REACTIONS (1)
  - ERUCTATION [None]
